FAERS Safety Report 5523105-0 (Version None)
Quarter: 2007Q4

REPORT INFORMATION
  Report Type: 
  Country: None (occurrence: None)
  Receive Date: 20071119
  Receipt Date: 20071101
  Transmission Date: 20080405
  Serious: Yes (Hospitalization, Other)
  Sender: FDA-Public Use
  Company Number: FACT0700220

PATIENT
  Age: 31 Year
  Sex: Female

DRUGS (3)
  1. FACTIVE [Suspect]
     Indication: BRONCHITIS
     Dosage: 320 MG, QD
     Dates: start: 20061210, end: 20061214
  2. ACETAMINOPHEN [Concomitant]
  3. IBUPROFEN [Concomitant]

REACTIONS (2)
  - DRUG HYPERSENSITIVITY [None]
  - STEVENS-JOHNSON SYNDROME [None]
